FAERS Safety Report 9330170 (Version 8)
Quarter: 2018Q3

REPORT INFORMATION
  Report Type: Spontaneous
  Country: ES (occurrence: ES)
  Receive Date: 20130604
  Receipt Date: 20180817
  Transmission Date: 20181010
  Serious: Yes (Death, Hospitalization, Other)
  Sender: FDA-Public Use
  Company Number: ES-CELGENEUS-144-21880-13040599

PATIENT
  Age: 78 Year
  Sex: Male
  Weight: 82.7 kg

DRUGS (42)
  1. OMEPRAZOLE. [Concomitant]
     Active Substance: OMEPRAZOLE
     Route: 065
     Dates: start: 20130509
  2. BOI K [Concomitant]
     Active Substance: POTASSIUM ASCORBATE
     Indication: PRODUCT USED FOR UNKNOWN INDICATION
     Route: 065
     Dates: start: 20120904
  3. DIPYRONE [Concomitant]
     Active Substance: DIPYRONE
     Indication: PRODUCT USED FOR UNKNOWN INDICATION
     Route: 065
     Dates: start: 20120820
  4. ALPRAZOLAM. [Concomitant]
     Active Substance: ALPRAZOLAM
     Route: 065
     Dates: start: 20130123
  5. ZOLEDRONIC ACID [Concomitant]
     Active Substance: ZOLEDRONIC ACID
     Route: 065
     Dates: start: 20130408, end: 20130408
  6. FUROSEMIDE. [Concomitant]
     Active Substance: FUROSEMIDE
     Route: 065
     Dates: start: 20121023
  7. CODEIN [Concomitant]
     Active Substance: CODEINE
     Route: 065
     Dates: start: 20130219, end: 20130220
  8. MUPIROCINE [Concomitant]
     Indication: PRODUCT USED FOR UNKNOWN INDICATION
     Route: 065
     Dates: start: 20121008
  9. DEXAMETHASONE. [Suspect]
     Active Substance: DEXAMETHASONE
     Indication: PLASMA CELL MYELOMA
     Route: 048
     Dates: start: 20120813, end: 20130422
  10. FUROSEMIDE. [Concomitant]
     Active Substance: FUROSEMIDE
     Route: 065
     Dates: start: 20130323, end: 20130324
  11. NISTATIN [Concomitant]
     Active Substance: NYSTATIN
     Indication: PRODUCT USED FOR UNKNOWN INDICATION
     Route: 065
     Dates: start: 20120903, end: 20120910
  12. HIDROSMIN [Concomitant]
     Active Substance: HIDROSMIN
     Indication: PRODUCT USED FOR UNKNOWN INDICATION
     Route: 065
     Dates: start: 20121024
  13. CODEIN [Concomitant]
     Active Substance: CODEINE
     Indication: PRODUCT USED FOR UNKNOWN INDICATION
     Route: 065
     Dates: start: 20130123, end: 20130429
  14. ALPRAZOLAM. [Concomitant]
     Active Substance: ALPRAZOLAM
     Indication: PRODUCT USED FOR UNKNOWN INDICATION
     Route: 065
     Dates: start: 20121022
  15. OMEPRAZOLE. [Concomitant]
     Active Substance: OMEPRAZOLE
     Route: 065
     Dates: start: 20130123, end: 20130429
  16. BOI K [Concomitant]
     Active Substance: POTASSIUM ASCORBATE
     Route: 065
     Dates: start: 20130218, end: 20130219
  17. BOI K [Concomitant]
     Active Substance: POTASSIUM ASCORBATE
     Route: 065
     Dates: start: 20130123
  18. DEXCHLORPHENIRAMINE MALEATE. [Concomitant]
     Active Substance: DEXCHLORPHENIRAMINE MALEATE
     Indication: PRODUCT USED FOR UNKNOWN INDICATION
     Route: 065
     Dates: start: 201208
  19. NISTATIN [Concomitant]
     Active Substance: NYSTATIN
     Route: 065
     Dates: start: 20121027
  20. ALPRAZOLAM. [Concomitant]
     Active Substance: ALPRAZOLAM
     Route: 065
     Dates: start: 20130323, end: 20130324
  21. WARFARIN [Concomitant]
     Active Substance: WARFARIN
     Route: 065
     Dates: start: 20130125
  22. FLUCONAZOL [Concomitant]
     Active Substance: FLUCONAZOLE
     Indication: PRODUCT USED FOR UNKNOWN INDICATION
     Route: 065
     Dates: start: 20130408, end: 20130429
  23. ZOLEDRONIC ACID [Concomitant]
     Active Substance: ZOLEDRONIC ACID
     Indication: PRODUCT USED FOR UNKNOWN INDICATION
     Route: 065
     Dates: start: 20120813, end: 20120813
  24. OMEPRAZOLE. [Concomitant]
     Active Substance: OMEPRAZOLE
     Route: 065
     Dates: start: 20130219
  25. PARACETAMOL [Concomitant]
     Active Substance: ACETAMINOPHEN
     Route: 065
     Dates: start: 20130607, end: 20130607
  26. DIPYRONE [Concomitant]
     Active Substance: DIPYRONE
     Route: 065
     Dates: start: 20130603, end: 20130605
  27. REVLIMID [Suspect]
     Active Substance: LENALIDOMIDE
     Route: 048
     Dates: start: 20120813, end: 20130421
  28. OMEPRAZOLE. [Concomitant]
     Active Substance: OMEPRAZOLE
     Indication: PRODUCT USED FOR UNKNOWN INDICATION
     Route: 065
     Dates: start: 20130219, end: 20130429
  29. OMEPRAZOLE. [Concomitant]
     Active Substance: OMEPRAZOLE
     Route: 065
     Dates: start: 200202, end: 20130429
  30. FUROSEMIDE. [Concomitant]
     Active Substance: FUROSEMIDE
     Indication: PRODUCT USED FOR UNKNOWN INDICATION
     Route: 065
     Dates: start: 200606, end: 20130415
  31. WARFARIN [Concomitant]
     Active Substance: WARFARIN
     Indication: PRODUCT USED FOR UNKNOWN INDICATION
     Route: 065
     Dates: start: 20130218
  32. REVLIMID [Suspect]
     Active Substance: LENALIDOMIDE
     Indication: PLASMA CELL MYELOMA
     Route: 048
     Dates: start: 20120813
  33. ZOLEDRONIC ACID [Concomitant]
     Active Substance: ZOLEDRONIC ACID
     Route: 065
     Dates: start: 20130304, end: 20130304
  34. CRESTOR [Concomitant]
     Active Substance: ROSUVASTATIN CALCIUM
     Indication: PRODUCT USED FOR UNKNOWN INDICATION
     Route: 065
     Dates: start: 20120514, end: 20130408
  35. FUROSEMIDE. [Concomitant]
     Active Substance: FUROSEMIDE
     Route: 065
     Dates: start: 20130219, end: 20130222
  36. FUROSEMIDE. [Concomitant]
     Active Substance: FUROSEMIDE
     Route: 065
     Dates: start: 20130318, end: 20130318
  37. BOI K [Concomitant]
     Active Substance: POTASSIUM ASCORBATE
     Route: 065
     Dates: start: 20130327, end: 20130327
  38. PARACETAMOL [Concomitant]
     Active Substance: ACETAMINOPHEN
     Indication: PRODUCT USED FOR UNKNOWN INDICATION
     Route: 065
     Dates: start: 20120820
  39. PARACETAMOL [Concomitant]
     Active Substance: ACETAMINOPHEN
     Route: 065
     Dates: start: 20130609, end: 20130614
  40. CALCIUM [Concomitant]
     Active Substance: CALCIUM
     Indication: PRODUCT USED FOR UNKNOWN INDICATION
     Route: 065
     Dates: start: 20130218
  41. AMLODIPINE [Concomitant]
     Active Substance: AMLODIPINE BESYLATE
     Indication: PRODUCT USED FOR UNKNOWN INDICATION
     Route: 065
     Dates: start: 200908
  42. MASTICAL [Concomitant]
     Active Substance: CALCIUM CARBONATE
     Indication: PRODUCT USED FOR UNKNOWN INDICATION
     Route: 065
     Dates: start: 20130123

REACTIONS (6)
  - Cardiac failure [Fatal]
  - Renal failure [Recovered/Resolved]
  - Pyrexia [Recovered/Resolved]
  - Cardiac failure [Recovered/Resolved]
  - Decubitus ulcer [Recovered/Resolved]
  - Anaemia [Recovered/Resolved]

NARRATIVE: CASE EVENT DATE: 20130327
